FAERS Safety Report 4303047-9 (Version None)
Quarter: 2004Q1

REPORT INFORMATION
  Report Type: 
  Country: None (occurrence: None)
  Receive Date: 20040224
  Receipt Date: 20020516
  Transmission Date: 20041129
  Serious: Yes (Hospitalization, Other)
  Sender: FDA-Public Use
  Company Number: WAES 0205USA02049

PATIENT
  Age: 60 Year
  Sex: Male
  Weight: 120 kg

DRUGS (11)
  1. [THERAPY UNSPECIFIED] [Concomitant]
     Indication: SINUS DISORDER
  2. ASPIRIN [Concomitant]
     Indication: PROPHYLAXIS
     Dates: end: 20030725
  3. ASPIRIN [Concomitant]
     Indication: ARTHRALGIA
     Dates: end: 20030725
  4. LIPITOR [Concomitant]
     Indication: HYPERLIPIDAEMIA
  5. PERSANTIN INJ [Concomitant]
  6. AMARYL [Concomitant]
     Indication: DIABETES MELLITUS
  7. GLUCOPHAGE [Concomitant]
     Indication: DIABETES MELLITUS
  8. ACTOS [Concomitant]
     Indication: DIABETES MELLITUS
  9. ZANTAC [Concomitant]
  10. VIOXX [Suspect]
     Indication: ARTHRITIS
     Route: 048
     Dates: start: 20000121, end: 20000201
  11. COENZYME Q10 [Concomitant]

REACTIONS (7)
  - AMNESIA [None]
  - AZOTAEMIA [None]
  - CEREBROVASCULAR ACCIDENT [None]
  - HYPERTENSION [None]
  - HYPOGLYCAEMIA [None]
  - LOSS OF LIBIDO [None]
  - MENTAL STATUS CHANGES [None]
